FAERS Safety Report 7328295-5 (Version None)
Quarter: 2011Q1

REPORT INFORMATION
  Report Type: 
  Country: None (occurrence: None)
  Receive Date: 20110223
  Receipt Date: 20110209
  Transmission Date: 20110831
  Serious: Yes (Other)
  Sender: FDA-Public Use
  Company Number: 2011S1000063

PATIENT
  Age: 39 Year
  Sex: Male
  Weight: 95 kg

DRUGS (3)
  1. AMLODIPINE [Concomitant]
  2. VALSARTAN [Suspect]
     Indication: HYPERTENSION
     Dosage: 80 MG;1X;PO
     Route: 048
     Dates: start: 20100801, end: 20110106
  3. LIVALO [Suspect]
     Indication: HYPERLIPIDAEMIA
     Dosage: 2 MG;1X;PO
     Route: 048
     Dates: start: 20101130, end: 20110106

REACTIONS (3)
  - RHABDOMYOLYSIS [None]
  - REFUSAL OF TREATMENT BY PATIENT [None]
  - ABDOMINAL PAIN [None]
